FAERS Safety Report 10664638 (Version 1)
Quarter: 2014Q4

REPORT INFORMATION
  Report Type: Report from Study
  Country: ES (occurrence: ES)
  Receive Date: 20141219
  Receipt Date: 20141219
  Transmission Date: 20150529
  Serious: Yes (Hospitalization, Other)
  Sender: FDA-Public Use
  Company Number: ES-SA-2014SA170668

PATIENT
  Age: 86 Year
  Sex: Male

DRUGS (3)
  1. SEGURIL [Suspect]
     Active Substance: FUROSEMIDE
     Indication: CARDIAC FAILURE
     Dosage: SEGURIL 40 MG COMPR 2-0-0
     Route: 048
     Dates: start: 2014
  2. SEGURIL [Suspect]
     Active Substance: FUROSEMIDE
     Indication: CARDIAC FAILURE
     Route: 065
  3. ENALAPRIL [Suspect]
     Active Substance: ENALAPRIL
     Indication: CARDIAC FAILURE
     Dosage: DOSAGE TEXT:5 MG 1-0-0
     Route: 048
     Dates: start: 2014, end: 20141111

REACTIONS (2)
  - Hyperkalaemia [Recovering/Resolving]
  - Chronic kidney disease [Recovering/Resolving]

NARRATIVE: CASE EVENT DATE: 2014
